FAERS Safety Report 18216574 (Version 1)
Quarter: 2020Q3

REPORT INFORMATION
  Report Type: Spontaneous
  Country: US (occurrence: US)
  Receive Date: 20200831
  Receipt Date: 20200831
  Transmission Date: 20201103
  Serious: No
  Sender: FDA-Public Use
  Company Number: None

PATIENT
  Age: 74 Year
  Sex: Male
  Weight: 77.56 kg

DRUGS (1)
  1. CEFEPIME (CEFEPIME HCL 1GM/VIL INJ) [Suspect]
     Active Substance: CEFEPIME HYDROCHLORIDE
     Indication: COVID-19 PNEUMONIA
     Dosage: ?          OTHER STRENGTH:1 GM/VIL;?
     Route: 042
     Dates: start: 20200609, end: 20200618

REACTIONS (5)
  - Tremor [None]
  - Neurotoxicity [None]
  - Confusional state [None]
  - Dysphemia [None]
  - Acute kidney injury [None]

NARRATIVE: CASE EVENT DATE: 20200618
